FAERS Safety Report 4387041-8 (Version None)
Quarter: 2004Q2

REPORT INFORMATION
  Report Type: 
  Country: None (occurrence: None)
  Receive Date: 20040630
  Receipt Date: 20040301
  Transmission Date: 20050107
  Serious: No
  Sender: FDA-Public Use
  Company Number: US-GLAXOSMITHKLINE-A0500648A

PATIENT
  Age: 75 Year
  Sex: Female

DRUGS (2)
  1. ADVAIR HFA [Suspect]
     Indication: ASTHMA
     Dosage: 100MCG PER DAY
     Route: 055
     Dates: start: 20030301
  2. TRIAMTERENE [Concomitant]
     Route: 065

REACTIONS (3)
  - HEADACHE [None]
  - NERVOUSNESS [None]
  - PALPITATIONS [None]
